FAERS Safety Report 15867663 (Version 1)
Quarter: 2019Q1

REPORT INFORMATION
  Report Type: Spontaneous
  Country: US (occurrence: US)
  Receive Date: 20190102
  Receipt Date: 20190102
  Transmission Date: 20190417
  Serious: No
  Sender: FDA-Public Use
  Company Number: None

PATIENT
  Age: 70 Year
  Sex: Male

DRUGS (5)
  1. ATORVASTATIN [Concomitant]
     Active Substance: ATORVASTATIN
  2. FINESTERIDE [Concomitant]
     Active Substance: FINASTERIDE
  3. METHOCARBAMOL 500MG GENERIC FOR ROBAXIN [Suspect]
     Active Substance: METHOCARBAMOL
     Indication: BACK PAIN
     Dosage: ?          QUANTITY:500 MG MILLIGRAM(S);?
     Route: 048
     Dates: start: 20181215, end: 20181217
  4. ZETIA [Concomitant]
     Active Substance: EZETIMIBE
  5. ASPIRIN. [Concomitant]
     Active Substance: ASPIRIN

REACTIONS (2)
  - Dizziness [None]
  - Balance disorder [None]

NARRATIVE: CASE EVENT DATE: 20181214
